FAERS Safety Report 13675225 (Version 2)
Quarter: 2017Q3

REPORT INFORMATION
  Report Type: Spontaneous
  Country: US (occurrence: US)
  Receive Date: 20170621
  Receipt Date: 20170707
  Transmission Date: 20171127
  Serious: No
  Sender: FDA-Public Use
  Company Number: US-ACTELION-A-US2017-154529

PATIENT
  Age: 50 Year
  Sex: Female

DRUGS (2)
  1. VELETRI [Suspect]
     Active Substance: EPOPROSTENOL
     Indication: PULMONARY ARTERIAL HYPERTENSION
     Dosage: 16 NG/KG, PER MIN
     Route: 042
  2. VELETRI [Suspect]
     Active Substance: EPOPROSTENOL
     Dosage: 16.6 NG/KG/MIN
     Route: 042
     Dates: start: 20170515

REACTIONS (6)
  - Pain in jaw [Not Recovered/Not Resolved]
  - Diarrhoea [Recovering/Resolving]
  - Myalgia [Recovering/Resolving]
  - Headache [Not Recovered/Not Resolved]
  - Limb discomfort [Not Recovered/Not Resolved]
  - Muscle spasms [Not Recovered/Not Resolved]

NARRATIVE: CASE EVENT DATE: 20170519
